FAERS Safety Report 8438312-7 (Version None)
Quarter: 2012Q2

REPORT INFORMATION
  Report Type: 
  Country: None (occurrence: None)
  Receive Date: 20120614
  Receipt Date: 20120604
  Transmission Date: 20120825
  Serious: Yes (Hospitalization)
  Sender: FDA-Public Use
  Company Number: DE-ELI_LILLY_AND_COMPANY-DE201206000558

PATIENT
  Sex: Male

DRUGS (5)
  1. BYDUREON [Suspect]
     Indication: DIABETES MELLITUS
     Dosage: 2 MG, UNKNOWN
     Route: 058
     Dates: start: 20111130
  2. METFORMIN HCL [Concomitant]
     Dosage: UNK
  3. ASPIRIN [Concomitant]
     Dosage: UNK
  4. METOPROLOL TARTRATE [Concomitant]
     Dosage: UNK
  5. SIMVASTATIN [Concomitant]
     Dosage: UNK

REACTIONS (2)
  - FATIGUE [None]
  - BLOOD PRESSURE DECREASED [None]
